FAERS Safety Report 13632128 (Version 1)
Quarter: 2017Q2

REPORT INFORMATION
  Report Type: Spontaneous
  Country: US (occurrence: US)
  Receive Date: 20170531
  Receipt Date: 20170531
  Transmission Date: 20170830
  Serious: No
  Sender: FDA-Public Use
  Company Number: US-ASTELLAS-1441879

PATIENT
  Sex: Female

DRUGS (6)
  1. FERROUS SULFATE. [Concomitant]
     Active Substance: FERROUS SULFATE
  2. LOSARTAN POTASSIUM. [Concomitant]
     Active Substance: LOSARTAN POTASSIUM
  3. ATENOLOL. [Concomitant]
     Active Substance: ATENOLOL
  4. ECOTRIN [Concomitant]
     Active Substance: ASPIRIN
  5. TARCEVA [Suspect]
     Active Substance: ERLOTINIB HYDROCHLORIDE
     Indication: BREAST CANCER
     Route: 048
     Dates: start: 20110720
  6. FISH OIL CONCENTRATE [Concomitant]
     Active Substance: FISH OIL

REACTIONS (3)
  - Nasal congestion [Unknown]
  - Contusion [Unknown]
  - Weight decreased [Unknown]
